FAERS Safety Report 18579894 (Version 1)
Quarter: 2020Q4

REPORT INFORMATION
  Report Type: Spontaneous
  Country: US (occurrence: US)
  Receive Date: 20201204
  Receipt Date: 20201204
  Transmission Date: 20210114
  Serious: No
  Sender: FDA-Public Use
  Company Number: US-CADILA HEALTHCARE LIMITED-US-ZYDUS-055611

PATIENT
  Sex: Female

DRUGS (1)
  1. LOSARTAN POTASSIUM 50 MILLIGRAM TABLET [Suspect]
     Active Substance: LOSARTAN POTASSIUM
     Indication: PRODUCT USED FOR UNKNOWN INDICATION
     Route: 065

REACTIONS (4)
  - Formication [Unknown]
  - Sleep disorder [Unknown]
  - Paraesthesia [Unknown]
  - Pruritus [Unknown]
